FAERS Safety Report 7692821-7 (Version None)
Quarter: 2011Q3

REPORT INFORMATION
  Report Type: 
  Country: None (occurrence: None)
  Receive Date: 20110819
  Receipt Date: 20110808
  Transmission Date: 20111222
  Serious: Yes (Disabling, Other)
  Sender: FDA-Public Use
  Company Number: GB-ELI_LILLY_AND_COMPANY-GB201108002473

PATIENT
  Age: 42 Year
  Sex: Male
  Weight: 153 kg

DRUGS (11)
  1. BYETTA [Suspect]
     Dosage: UNK
     Dates: start: 20110301, end: 20110401
  2. ALLOPURINOL [Concomitant]
  3. ATORVASTATIN [Concomitant]
  4. VALSARTAN [Concomitant]
  5. DOXAZOSIN MESYLATE [Concomitant]
  6. METFORMIN [Concomitant]
  7. SITAGLIPTIN [Concomitant]
  8. ASPIRIN [Concomitant]
  9. BENDROFLUMETHIAZIDE [Concomitant]
  10. AMLODIPINE [Concomitant]
  11. SIMVASTATIN [Concomitant]

REACTIONS (2)
  - GOUTY ARTHRITIS [None]
  - PAIN [None]
